FAERS Safety Report 20537225 (Version 9)
Quarter: 2022Q4

REPORT INFORMATION
  Report Type: Spontaneous
  Country: US (occurrence: US)
  Receive Date: 20220302
  Receipt Date: 20221208
  Transmission Date: 20230112
  Serious: Yes (Hospitalization, Other)
  Sender: FDA-Public Use
  Company Number: US-ALXN-A202202769

PATIENT
  Age: 0 Year
  Sex: Male
  Weight: 3.92 kg

DRUGS (11)
  1. STRENSIQ [Suspect]
     Active Substance: ASFOTASE ALFA
     Dosage: 10.4 MG, TIW
     Route: 058
  2. STRENSIQ [Suspect]
     Active Substance: ASFOTASE ALFA
     Dosage: 13.6 MG, TIW
     Route: 058
     Dates: start: 20220309
  3. STRENSIQ [Suspect]
     Active Substance: ASFOTASE ALFA
     Dosage: 18 MG, UNK
     Route: 065
  4. STRENSIQ [Suspect]
     Active Substance: ASFOTASE ALFA
     Dosage: 20 MG, UNK
     Route: 065
  5. STRENSIQ [Suspect]
     Active Substance: ASFOTASE ALFA
     Indication: Hypophosphatasia
     Dosage: 6 MG, TIW
     Route: 058
     Dates: start: 20220107
  6. STRENSIQ [Suspect]
     Active Substance: ASFOTASE ALFA
     Dosage: 9.2 MG, TIW
     Route: 058
  7. GABAPENTIN [Concomitant]
     Active Substance: GABAPENTIN
     Indication: Agitation
     Dosage: 3.3 MG/KG, Q8H
     Route: 048
  8. POLYCITRA                          /00158701/ [Concomitant]
     Indication: Product used for unknown indication
     Dosage: 1.7 MG, Q6H
     Route: 048
  9. PYRIDOXINE [Concomitant]
     Active Substance: PYRIDOXINE
     Indication: Seizure prophylaxis
     Dosage: 45 MG, QD
     Route: 048
  10. VANCOMYCIN [Concomitant]
     Active Substance: VANCOMYCIN
     Indication: Product used for unknown indication
     Dosage: UNK
     Route: 065
  11. VITAMIN D                          /00107901/ [Concomitant]
     Indication: Product used for unknown indication
     Dosage: 800 UT, QD
     Route: 048

REACTIONS (10)
  - Chronic respiratory failure [Recovering/Resolving]
  - Dysphagia [Not Recovered/Not Resolved]
  - Nephrocalcinosis [Unknown]
  - Hydrocephalus [Unknown]
  - Nephritis [Recovered/Resolved]
  - Nosocomial infection [Unknown]
  - Urinary tract infection [Recovered/Resolved]
  - Vitamin D deficiency [Recovered/Resolved]
  - Blood calcium increased [Unknown]
  - Calcium ionised increased [Unknown]

NARRATIVE: CASE EVENT DATE: 20220101
